FAERS Safety Report 5930612-5 (Version None)
Quarter: 2008Q4

REPORT INFORMATION
  Report Type: 
  Country: None (occurrence: None)
  Receive Date: 20081027
  Receipt Date: 20081017
  Transmission Date: 20090506
  Serious: Yes (Other)
  Sender: FDA-Public Use
  Company Number: US-JNJFOC-20081004903

PATIENT
  Sex: Female
  Weight: 99.79 kg

DRUGS (3)
  1. FENTANYL TRANSDERMAL SYSTEM [Suspect]
     Indication: ARTHRALGIA
     Route: 062
  2. DURAGESIC-100 [Suspect]
     Indication: ARTHRALGIA
     Route: 062
  3. CODEINE SUL TAB [Concomitant]
     Indication: BREAKTHROUGH PAIN
     Dosage: 1 EVERY 4 HOURS AS NEEDED
     Route: 048

REACTIONS (6)
  - CROHN'S DISEASE [None]
  - DECREASED APPETITE [None]
  - GASTROINTESTINAL PAIN [None]
  - HYPOPHAGIA [None]
  - WEIGHT DECREASED [None]
  - WEIGHT FLUCTUATION [None]
